FAERS Safety Report 4324562-8 (Version None)
Quarter: 2004Q1

REPORT INFORMATION
  Report Type: 
  Country: None (occurrence: None)
  Receive Date: 20040326
  Receipt Date: 20040316
  Transmission Date: 20041129
  Serious: Yes (Hospitalization, Other)
  Sender: FDA-Public Use
  Company Number: PHRM2004FR01216

PATIENT
  Age: 83 Year
  Sex: Female
  Weight: 70 kg

DRUGS (6)
  1. COTAREG [Suspect]
     Dosage: .5 DF, QD
     Route: 048
     Dates: start: 20040206
  2. HYPERIUM [Suspect]
     Indication: HYPERTENSION
     Dosage: 1 MG, QD
     Route: 048
  3. AMLOR [Suspect]
     Dosage: 5 MG, QD
     Route: 048
  4. OFLOCET [Concomitant]
     Indication: PYELONEPHRITIS
     Route: 048
     Dates: start: 20040206
  5. PLAVIX [Concomitant]
     Dosage: 1 DF, QD
     Route: 048
  6. ELISOR [Concomitant]
     Indication: DYSLIPIDAEMIA
     Dosage: 20 MG, QD
     Route: 048

REACTIONS (9)
  - DIARRHOEA [None]
  - DRUG INTERACTION [None]
  - FATIGUE [None]
  - HYPOTENSION [None]
  - LOSS OF CONSCIOUSNESS [None]
  - MALAISE [None]
  - OXYGEN SATURATION DECREASED [None]
  - PYELONEPHRITIS [None]
  - PYREXIA [None]
